FAERS Safety Report 6303332-5 (Version None)
Quarter: 2009Q3

REPORT INFORMATION
  Report Type: 
  Country: None (occurrence: None)
  Receive Date: 20090810
  Receipt Date: 20090618
  Transmission Date: 20100115
  Serious: No
  Sender: FDA-Public Use
  Company Number: A0792257A

PATIENT
  Age: 40 Year
  Sex: Female

DRUGS (3)
  1. TREXIMET [Suspect]
     Indication: MIGRAINE
     Route: 048
     Dates: start: 20090617
  2. TOPAMAX [Concomitant]
  3. WELLBUTRIN [Concomitant]

REACTIONS (2)
  - DIZZINESS [None]
  - OVERDOSE [None]
